FAERS Safety Report 5241921-X (Version None)
Quarter: 2007Q1

REPORT INFORMATION
  Report Type: 
  Country: None (occurrence: None)
  Receive Date: 20070220
  Receipt Date: 20070206
  Transmission Date: 20070707
  Serious: Yes (Hospitalization)
  Sender: FDA-Public Use
  Company Number: US-SHR-US-2006-026467

PATIENT
  Age: 64 Year
  Sex: Female

DRUGS (8)
  1. BETASERON [Suspect]
     Dosage: 8 MIU, EVERY 2D
     Route: 058
     Dates: start: 20000420, end: 20061204
  2. LOVENOX [Concomitant]
  3. GABAPENTIN [Concomitant]
  4. BACLOFEN [Concomitant]
  5. OXYCODONE HCL [Concomitant]
  6. FOLIC ACID [Concomitant]
  7. ZINC [Concomitant]
  8. CYMBALTA (DULOXETIN) [Concomitant]

REACTIONS (4)
  - DIZZINESS [None]
  - LUNG NEOPLASM MALIGNANT [None]
  - PNEUMONIA [None]
  - PNEUMOTHORAX [None]
